FAERS Safety Report 8097326-X (Version None)
Quarter: 2012Q1

REPORT INFORMATION
  Report Type: 
  Country: None (occurrence: None)
  Receive Date: 20120128
  Receipt Date: 20110717
  Transmission Date: 20120608
  Serious: No
  Sender: FDA-Public Use
  Company Number: US-ABBOTT-11P-163-0839561-00

PATIENT
  Age: 59 Year
  Sex: Female

DRUGS (3)
  1. NEURONTIN [Concomitant]
     Indication: INSOMNIA
     Dosage: AT BEDTIME
  2. HUMIRA [Suspect]
     Indication: RHEUMATOID ARTHRITIS
     Dates: start: 20040101
  3. VICODIN [Concomitant]
     Indication: PAIN

REACTIONS (4)
  - RASH [None]
  - FUNGAL SKIN INFECTION [None]
  - RASH GENERALISED [None]
  - ARTHRALGIA [None]
